FAERS Safety Report 11501408 (Version 2)
Quarter: 2015Q3

REPORT INFORMATION
  Report Type: Spontaneous
  Country: IT (occurrence: IT)
  Receive Date: 20150914
  Receipt Date: 20150918
  Transmission Date: 20151125
  Serious: Yes (Hospitalization)
  Sender: FDA-Public Use
  Company Number: IT-ELI_LILLY_AND_COMPANY-IT201509001767

PATIENT
  Age: 84 Year
  Sex: Male
  Weight: 70 kg

DRUGS (24)
  1. HUMALOG [Suspect]
     Active Substance: INSULIN LISPRO
     Dosage: 4 IU, EACH EVENING
     Route: 058
     Dates: start: 20150829, end: 20150829
  2. FINASTERIDE. [Concomitant]
     Active Substance: FINASTERIDE
     Dosage: UNK
     Route: 065
     Dates: start: 20150724
  3. CARDIOASPIRIN [Concomitant]
     Active Substance: ASPIRIN
     Dosage: 100 MG, UNKNOWN
     Route: 065
     Dates: start: 20150724
  4. ADROVANCE [Concomitant]
     Active Substance: ALENDRONATE SODIUM\CHOLECALCIFEROL
     Dosage: 70 MG, UNK
     Route: 065
     Dates: start: 20150724
  5. LANTUS [Suspect]
     Active Substance: INSULIN GLARGINE
     Dosage: 30 IU, UNKNOWN
     Route: 058
  6. CRESTOR [Concomitant]
     Active Substance: ROSUVASTATIN CALCIUM
     Dosage: UNK
     Route: 065
     Dates: start: 20150724
  7. HUMALOG [Suspect]
     Active Substance: INSULIN LISPRO
     Dosage: 3 IU, EACH EVENING
     Route: 058
     Dates: start: 20150830, end: 20150830
  8. LANTUS [Suspect]
     Active Substance: INSULIN GLARGINE
     Indication: TYPE 2 DIABETES MELLITUS
     Dosage: 10 IU, QD
     Route: 058
     Dates: start: 20150806
  9. LANTUS [Suspect]
     Active Substance: INSULIN GLARGINE
     Dosage: 10 IU, UNKNOWN
     Route: 058
     Dates: end: 20150828
  10. HUMALOG [Suspect]
     Active Substance: INSULIN LISPRO
     Dosage: 6 IU, UNKNOWN
     Route: 058
     Dates: start: 20150825, end: 20150827
  11. HUMALOG [Suspect]
     Active Substance: INSULIN LISPRO
     Dosage: 8 IU, QD
     Route: 058
     Dates: start: 20150829, end: 20150829
  12. HUMALOG [Suspect]
     Active Substance: INSULIN LISPRO
     Dosage: 10 IU, QD
     Route: 058
     Dates: start: 20150830, end: 20150830
  13. METFORMIN [Suspect]
     Active Substance: METFORMIN HYDROCHLORIDE
     Indication: TYPE 2 DIABETES MELLITUS
     Dosage: 1000 MG, QD
     Route: 048
     Dates: start: 20150806, end: 20150828
  14. LANTUS [Suspect]
     Active Substance: INSULIN GLARGINE
     Dosage: 20 IU, UNKNOWN
     Route: 058
  15. MINITRAN [Concomitant]
     Active Substance: NITROGLYCERIN
     Dosage: UNK
     Route: 062
     Dates: start: 20150724
  16. MEDROL [Concomitant]
     Active Substance: METHYLPREDNISOLONE
     Dosage: 24 MG, UNKNOWN
     Route: 065
     Dates: start: 20150724
  17. GLICAZIDA [Concomitant]
     Dosage: 60 MG, UNKNOWN
     Route: 065
     Dates: start: 20150724, end: 20150826
  18. HUMALOG [Suspect]
     Active Substance: INSULIN LISPRO
     Dosage: 10 IU, QD
     Route: 058
     Dates: start: 20150828, end: 20150828
  19. HUMALOG [Suspect]
     Active Substance: INSULIN LISPRO
     Indication: TYPE 2 DIABETES MELLITUS
     Dosage: 12 IU, QD
     Route: 058
     Dates: start: 20150806, end: 20150824
  20. HUMALOG [Suspect]
     Active Substance: INSULIN LISPRO
     Dosage: 10 IU, QD
     Route: 058
     Dates: start: 20150831, end: 20150901
  21. METFORMIN [Suspect]
     Active Substance: METFORMIN HYDROCHLORIDE
     Dosage: 500 MG, UNKNOWN
     Route: 048
     Dates: start: 20150829
  22. HUMALOG [Suspect]
     Active Substance: INSULIN LISPRO
     Dosage: 4 IU, EACH EVENING
     Route: 058
     Dates: start: 20150828, end: 20150828
  23. LANSOX [Concomitant]
     Active Substance: LANSOPRAZOLE
     Dosage: UNK
     Route: 065
     Dates: start: 20150724
  24. TRIATEC                            /00885601/ [Concomitant]
     Active Substance: RAMIPRIL
     Dosage: 5 MG, UNKNOWN
     Route: 065
     Dates: start: 20150724

REACTIONS (3)
  - Blood glucose abnormal [Recovered/Resolved]
  - Drug prescribing error [Unknown]
  - Hypoglycaemia [Unknown]

NARRATIVE: CASE EVENT DATE: 20150828
